FAERS Safety Report 24053453 (Version 1)
Quarter: 2024Q3

REPORT INFORMATION
  Report Type: Spontaneous
  Country: US (occurrence: US)
  Receive Date: 20240705
  Receipt Date: 20240705
  Transmission Date: 20241017
  Serious: No
  Sender: TEVA
  Company Number: US-TEVA-VS-3215360

PATIENT
  Sex: Female

DRUGS (3)
  1. AJOVY [Suspect]
     Active Substance: FREMANEZUMAB-VFRM
     Indication: Migraine
     Dosage: UNKNOWN
     Route: 065
     Dates: start: 2022, end: 2023
  2. AJOVY [Suspect]
     Active Substance: FREMANEZUMAB-VFRM
     Route: 065
     Dates: start: 20240612
  3. UBRELVY [Concomitant]
     Active Substance: UBROGEPANT

REACTIONS (3)
  - Constipation [Unknown]
  - Product use complaint [Unknown]
  - Injection site pain [Unknown]
